FAERS Safety Report 18747049 (Version 2)
Quarter: 2021Q1

REPORT INFORMATION
  Report Type: Spontaneous
  Country: PR (occurrence: PR)
  Receive Date: 20210115
  Receipt Date: 20210312
  Transmission Date: 20210419
  Serious: Yes (Life-Threatening, Hospitalization)
  Sender: FDA-Public Use
  Company Number: PR-TEVA-2021-PR-1867503

PATIENT
  Age: 36 Year
  Sex: Male

DRUGS (1)
  1. ZOLPIDEM [Suspect]
     Active Substance: ZOLPIDEM TARTRATE
     Indication: SUICIDE ATTEMPT
     Dosage: INGESTION OF 90 PILLS
     Route: 065

REACTIONS (11)
  - Rhabdomyolysis [Recovering/Resolving]
  - Coma [Recovered/Resolved]
  - Incoherent [Recovering/Resolving]
  - Intentional overdose [Unknown]
  - Renal failure [Recovered/Resolved]
  - Hyperhidrosis [Recovering/Resolving]
  - Conjunctival haemorrhage [Recovering/Resolving]
  - Disorientation [Recovering/Resolving]
  - Metabolic acidosis [Recovering/Resolving]
  - Seizure [Recovering/Resolving]
  - Petechiae [Recovering/Resolving]
